FAERS Safety Report 6004115-6 (Version None)
Quarter: 2008Q4

REPORT INFORMATION
  Report Type: 
  Country: None (occurrence: None)
  Receive Date: 20081216
  Receipt Date: 20081210
  Transmission Date: 20090506
  Serious: Yes (Hospitalization)
  Sender: FDA-Public Use
  Company Number: US-JNJFOC-20081203127

PATIENT
  Age: 13 Month
  Sex: Male
  Weight: 11.79 kg

DRUGS (7)
  1. CONCENTRATED MOTRIN INFANTS [Suspect]
     Route: 048
  2. CONCENTRATED MOTRIN INFANTS [Suspect]
     Indication: TEETHING
     Route: 048
  3. CHILDRENS TYLENOL LIQUID DYE-FREE CHERRY [Suspect]
     Route: 048
  4. CHILDRENS TYLENOL LIQUID DYE-FREE CHERRY [Suspect]
     Indication: TEETHING
     Dosage: 160MG EVERY 4-6 HOURS
     Route: 048
  5. CHILDREN'S MOTRIN [Suspect]
     Route: 048
  6. CHILDREN'S MOTRIN [Suspect]
     Indication: TEETHING
     Route: 048
  7. ZYRTEC [Suspect]
     Indication: ALLERGY PROPHYLAXIS

REACTIONS (1)
  - REACTION TO DRUG EXCIPIENTS [None]
